FAERS Safety Report 5799632-8 (Version None)
Quarter: 2008Q3

REPORT INFORMATION
  Report Type: 
  Country: None (occurrence: None)
  Receive Date: 20080703
  Receipt Date: 20080626
  Transmission Date: 20090109
  Serious: Yes (Hospitalization)
  Sender: FDA-Public Use
  Company Number: DE-TYCO HEALTHCARE/MALLINCKRODT-T200801068

PATIENT

DRUGS (2)
  1. TECHNESCAN MAA [Suspect]
     Indication: SCINTIGRAPHY
     Dosage: UNK, SINGLE
     Route: 042
     Dates: start: 20080529, end: 20080529
  2. ULTRA-TECHNEKOW FM [Suspect]
     Indication: SCINTIGRAPHY
     Dosage: 150 MBQ, SINGLE
     Route: 042
     Dates: start: 20080529, end: 20080529

REACTIONS (8)
  - ANXIETY [None]
  - MALAISE [None]
  - MORBID THOUGHTS [None]
  - NERVOUSNESS [None]
  - PALLOR [None]
  - PULSE ABSENT [None]
  - SYNCOPE VASOVAGAL [None]
  - TRYPTASE DECREASED [None]
